FAERS Safety Report 8801184 (Version 2)
Quarter: 2012Q4

REPORT INFORMATION
  Report Type: 
  Country: TR (occurrence: TR)
  Receive Date: 20120921
  Receipt Date: 20121001
  Transmission Date: 20130627
  Serious: Yes (Hospitalization, Other)
  Sender: FDA-Public Use
  Company Number: TR-RANBAXY-2012RR-60329

PATIENT
  Age: 42 Year
  Sex: Female

DRUGS (2)
  1. CEFUROXIME [Suspect]
     Indication: LIPOSUCTION
     Dosage: 250 mg/ day
     Route: 048
     Dates: start: 2010
  2. NAPROXEN [Suspect]
     Indication: LIPOSUCTION
     Dosage: 550 mg, bid
     Route: 065
     Dates: start: 2010

REACTIONS (1)
  - Thrombotic thrombocytopenic purpura [Recovered/Resolved]
